FAERS Safety Report 10581297 (Version 2)
Quarter: 2015Q1

REPORT INFORMATION
  Report Type: Report from Study
  Country: DE (occurrence: DE)
  Receive Date: 20141113
  Receipt Date: 20150324
  Transmission Date: 20150720
  Serious: Yes (Death, Other)
  Sender: FDA-Public Use
  Company Number: DE-CELGENE-DEU-2014111403

PATIENT
  Age: 63 Year
  Sex: Male
  Weight: 72 kg

DRUGS (4)
  1. AZACITIDINE. [Suspect]
     Active Substance: AZACITIDINE
     Indication: ACUTE MYELOID LEUKAEMIA
     Route: 050
     Dates: start: 20140429
  2. REVLIMID [Suspect]
     Active Substance: LENALIDOMIDE
     Indication: ACUTE MYELOID LEUKAEMIA
     Route: 048
  3. SANDIMMUNE [Concomitant]
     Active Substance: CYCLOSPORINE
     Indication: PRODUCT USED FOR UNKNOWN INDICATION
     Route: 065
  4. SANDIMMUNE [Concomitant]
     Active Substance: CYCLOSPORINE
     Dosage: 150 NG/NL
     Route: 065

REACTIONS (5)
  - Enterococcal infection [Unknown]
  - No therapeutic response [Unknown]
  - Acute myeloid leukaemia [Fatal]
  - Pneumonia [Unknown]
  - Graft versus host disease in skin [Unknown]

NARRATIVE: CASE EVENT DATE: 20140618
